FAERS Safety Report 5651571-9 (Version None)
Quarter: 2008Q1

REPORT INFORMATION
  Report Type: 
  Country: None (occurrence: None)
  Receive Date: 20080131
  Receipt Date: 20071114
  Transmission Date: 20080703
  Serious: No
  Sender: FDA-Public Use
  Company Number: US200711003610

PATIENT
  Age: 37 Year
  Sex: Male

DRUGS (6)
  1. BYETTA [Suspect]
     Indication: INSULIN-REQUIRING TYPE 2 DIABETES MELLITUS
     Dosage: 5 UG, 2/D, SUBCUTANEOUS ; 10 UG, 2/D, SUBCUTANEOUS ; SUBCUTANEOUS
     Route: 058
     Dates: start: 20070101, end: 20070101
  2. BYETTA [Suspect]
     Indication: INSULIN-REQUIRING TYPE 2 DIABETES MELLITUS
     Dosage: 5 UG, 2/D, SUBCUTANEOUS ; 10 UG, 2/D, SUBCUTANEOUS ; SUBCUTANEOUS
     Route: 058
     Dates: start: 20070101
  3. BYETTA [Suspect]
     Indication: INSULIN-REQUIRING TYPE 2 DIABETES MELLITUS
     Dosage: 5 UG, 2/D, SUBCUTANEOUS ; 10 UG, 2/D, SUBCUTANEOUS ; SUBCUTANEOUS
     Route: 058
     Dates: start: 20070101
  4. METFORMIN HCL [Concomitant]
  5. AVANDIA [Concomitant]
  6. LEVEMIR (INSULIN DETEMIR) [Concomitant]

REACTIONS (5)
  - BLOOD GLUCOSE INCREASED [None]
  - INCORRECT DOSE ADMINISTERED [None]
  - NAUSEA [None]
  - SINUSITIS [None]
  - VOMITING [None]
